FAERS Safety Report 5344121-8 (Version None)
Quarter: 2007Q2

REPORT INFORMATION
  Report Type: 
  Country: None (occurrence: None)
  Receive Date: 20070531
  Receipt Date: 20070531
  Transmission Date: 20071010
  Serious: Yes (Other)
  Sender: FDA-Public Use
  Company Number: None

PATIENT
  Sex: Female

DRUGS (9)
  1. REVLIMID [Suspect]
     Indication: MULTIPLE MYELOMA
     Dosage: 25 MG DAILY FOR 21 DAYS PO
     Route: 048
     Dates: start: 20070214, end: 20070412
  2. REVLIMID [Suspect]
     Indication: MULTIPLE MYELOMA
     Dosage: 25 MG DAILY FOR 21 DAYS PO
     Route: 048
     Dates: start: 20070214, end: 20070412
  3. ZOMETA [Concomitant]
  4. HYDROCHLOROTHIAZIDE [Concomitant]
  5. FLUOXETINE [Concomitant]
  6. ACETAMINOPHEN AND HYDROCODONE BITARTRATE [Concomitant]
  7. LORAZEPAM [Concomitant]
  8. PROCRIT [Concomitant]
  9. FUROSEMIDE [Concomitant]

REACTIONS (2)
  - NEUROPATHY [None]
  - THROMBOCYTOPENIA [None]
